FAERS Safety Report 7325562-6 (Version None)
Quarter: 2011Q1

REPORT INFORMATION
  Report Type: 
  Country: None (occurrence: None)
  Receive Date: 20110302
  Receipt Date: 20110221
  Transmission Date: 20110831
  Serious: Yes (Hospitalization)
  Sender: FDA-Public Use
  Company Number: US-B.I. PHARMACEUTICALS,INC./RIDGEFIELD-2011-BP-00276BP

PATIENT
  Age: 83 Year
  Sex: Male
  Weight: 102.97 kg

DRUGS (11)
  1. NOVOLOG [Concomitant]
  2. PHOSLO [Concomitant]
  3. KEFLEX [Concomitant]
  4. COLACE [Concomitant]
  5. ZEMPLAR [Concomitant]
  6. ZOCOR [Concomitant]
  7. PRADAXA [Suspect]
     Indication: ATRIAL FIBRILLATION
     Dosage: 300 MG
     Dates: start: 20101215, end: 20101230
  8. ALLOPURINOL [Concomitant]
     Dosage: 100 MG
  9. DRIDOL [Concomitant]
  10. LEVOTHYROXINE [Concomitant]
     Dosage: 25 MCG
  11. IMDUR [Concomitant]
     Dosage: 30 MG

REACTIONS (9)
  - CELLULITIS [None]
  - HAEMATOCHEZIA [None]
  - GASTRIC HAEMORRHAGE [None]
  - RENAL FAILURE CHRONIC [None]
  - COAGULOPATHY [None]
  - GASTROINTESTINAL HAEMORRHAGE [None]
  - RECTAL HAEMORRHAGE [None]
  - RENAL IMPAIRMENT [None]
  - EPISTAXIS [None]
